FAERS Safety Report 15886202 (Version 4)
Quarter: 2019Q1

REPORT INFORMATION
  Report Type: Spontaneous
  Country: US (occurrence: US)
  Receive Date: 20190129
  Receipt Date: 20190326
  Transmission Date: 20190417
  Serious: Yes (Other)
  Sender: FDA-Public Use
  Company Number: US-PFIZER INC-2019042053

PATIENT
  Age: 81 Year
  Sex: Female
  Weight: 73 kg

DRUGS (3)
  1. EXEMESTANE MYLAN [Interacting]
     Active Substance: EXEMESTANE
     Indication: HORMONE SUPPRESSION THERAPY
     Dosage: 25 MG, 1X/DAY
     Route: 048
     Dates: start: 201807, end: 20181219
  2. DILANTIN [Suspect]
     Active Substance: PHENYTOIN
     Indication: SEIZURE
     Dosage: 300 MG, DAILY (AT NIGHT)
     Route: 048
     Dates: start: 1963
  3. DILANTIN [Interacting]
     Active Substance: PHENYTOIN
     Dosage: 300 MG, 1X/DAY (NIGHTLY)

REACTIONS (4)
  - Anticonvulsant drug level decreased [Recovered/Resolved]
  - Seizure [Recovering/Resolving]
  - Drug interaction [Recovered/Resolved]
  - Hepatic enzyme decreased [Unknown]

NARRATIVE: CASE EVENT DATE: 20181220
